FAERS Safety Report 6179785 (Version 4)
Quarter: 2014Q4

REPORT INFORMATION
  Report Type: Spontaneous
  Country: GB (occurrence: US)
  Receive Date: 20061205
  Receipt Date: 20141009
  Transmission Date: 20150529
  Serious: Yes (Death)
  Sender: FDA-Public Use
  Company Number: GB-ELI_LILLY_AND_COMPANY-US89103610A

PATIENT
  Age: 47 Year
  Sex: Male

DRUGS (4)
  1. TRAZODONE [Concomitant]
     Active Substance: TRAZODONE HYDROCHLORIDE
     Dosage: UNK, OTHER
  2. TEMAZEPAM. [Concomitant]
     Active Substance: TEMAZEPAM
     Dosage: UNK, UNKNOWN
  3. PROZAC [Suspect]
     Active Substance: FLUOXETINE HYDROCHLORIDE
     Indication: DEPRESSION
     Dosage: 20 MG, UNKNOWN
     Route: 048
     Dates: start: 19890810, end: 19890911
  4. LITHIUM [Concomitant]
     Active Substance: LITHIUM CARBONATE
     Dosage: UNK, 3/D

REACTIONS (7)
  - Aggression [Fatal]
  - Suicide attempt [Fatal]
  - Homicide [Fatal]
  - Fatigue [Unknown]
  - Agitation [Unknown]
  - Insomnia [Unknown]
  - Tangentiality [Unknown]

NARRATIVE: CASE EVENT DATE: 19890914
